FAERS Safety Report 8099824-1 (Version None)
Quarter: 2012Q1

REPORT INFORMATION
  Report Type: 
  Country: None (occurrence: None)
  Receive Date: 20120129
  Receipt Date: 20111026
  Transmission Date: 20120608
  Serious: No
  Sender: FDA-Public Use
  Company Number: US-ABBOTT-11P-163-0862582-00

PATIENT
  Sex: Female
  Weight: 91.708 kg

DRUGS (10)
  1. IRON [Concomitant]
     Indication: ANAEMIA
     Dosage: DAILY
  2. FOLIC ACID [Concomitant]
     Indication: RHEUMATOID ARTHRITIS
     Dosage: DAILY
  3. IMPRATROPIUM BROMIDE [Concomitant]
     Indication: PRODUCT USED FOR UNKNOWN INDICATION
     Dosage: NEBULIZER AS NEEDED TID
  4. HUMIRA [Suspect]
     Route: 058
     Dates: start: 20110917, end: 20110917
  5. PENTASA [Concomitant]
     Indication: CROHN'S DISEASE
  6. HUMIRA [Suspect]
     Indication: CROHN'S DISEASE
     Route: 058
     Dates: start: 20110903, end: 20110903
  7. VITAMIN D [Concomitant]
     Indication: PRODUCT USED FOR UNKNOWN INDICATION
     Dosage: WEEKLY
  8. HUMIRA [Suspect]
     Route: 058
     Dates: start: 20111001
  9. PREDNISONE TAB [Concomitant]
     Indication: CROHN'S DISEASE
     Dosage: DAILY; DECREASING DOSE
  10. PREVACID [Concomitant]
     Indication: GASTROOESOPHAGEAL REFLUX DISEASE
     Dosage: DAILY

REACTIONS (4)
  - ASTHENIA [None]
  - GASTROENTERITIS VIRAL [None]
  - FATIGUE [None]
  - NAUSEA [None]
